FAERS Safety Report 8894945 (Version 1)
Quarter: 2012Q4

REPORT INFORMATION
  Report Type: 
  Country: DE (occurrence: DE)
  Receive Date: 20121108
  Receipt Date: 20121108
  Transmission Date: 20130627
  Serious: Yes (Death, Hospitalization, Other)
  Sender: FDA-Public Use
  Company Number: DE-CELGENEUS-062-50794-12110417

PATIENT
  Sex: Male
  Weight: 71 kg

DRUGS (3)
  1. VIDAZA [Suspect]
     Indication: MYELODYSPLASTIC SYNDROME
     Dosage: 100 Milligram
     Route: 058
     Dates: start: 20111004, end: 20120720
  2. CGP [Concomitant]
     Indication: IRON OVERLOAD
     Route: 048
  3. DEFERASIROX [Concomitant]
     Indication: DRUG USE FOR UNKNOWN INDICATION
     Route: 065

REACTIONS (6)
  - Acute myocardial infarction [Fatal]
  - Cardiac failure [Fatal]
  - Pneumonia [Fatal]
  - Urinary retention [Recovering/Resolving]
  - General physical health deterioration [Unknown]
  - Weight decreased [Unknown]
